FAERS Safety Report 6914468-X (Version None)
Quarter: 2010Q3

REPORT INFORMATION
  Report Type: 
  Country: None (occurrence: None)
  Receive Date: 20100809
  Receipt Date: 20100730
  Transmission Date: 20110219
  Serious: Yes (Other)
  Sender: FDA-Public Use
  Company Number: US-PFIZER INC-2010096133

PATIENT
  Sex: Female
  Weight: 83.9 kg

DRUGS (2)
  1. GEODON [Suspect]
     Indication: SCHIZOAFFECTIVE DISORDER
     Dosage: 60 MG, 2X/DAY
  2. SYMBYAX [Concomitant]
     Indication: DEPRESSION
     Dosage: 12/25 MG 1X/DAY
     Route: 048

REACTIONS (11)
  - CONFUSIONAL STATE [None]
  - DIZZINESS [None]
  - DRUG DEPENDENCE [None]
  - DRUG HYPERSENSITIVITY [None]
  - EYE ROLLING [None]
  - FATIGUE [None]
  - HYPOTHYROIDISM [None]
  - INCREASED APPETITE [None]
  - IRRITABILITY [None]
  - STRESS [None]
  - WEIGHT INCREASED [None]
